FAERS Safety Report 5507234-3 (Version None)
Quarter: 2007Q4

REPORT INFORMATION
  Report Type: 
  Country: None (occurrence: None)
  Receive Date: 20071105
  Receipt Date: 20071105
  Transmission Date: 20080405
  Serious: No
  Sender: FDA-Public Use
  Company Number: None

PATIENT
  Sex: Male
  Weight: 95.3 kg

DRUGS (1)
  1. ELOXATIN [Suspect]
     Dosage: 360 MG
     Dates: end: 20071016

REACTIONS (1)
  - NEUTROPENIA [None]
